FAERS Safety Report 19259333 (Version 4)
Quarter: 2021Q3

REPORT INFORMATION
  Report Type: Spontaneous
  Country: BE (occurrence: BE)
  Receive Date: 20210514
  Receipt Date: 20210713
  Transmission Date: 20211014
  Serious: Yes (Other)
  Sender: FDA-Public Use
  Company Number: BE-PFIZER INC-2021522824

PATIENT
  Age: 80 Year
  Sex: Female

DRUGS (5)
  1. COBIMETINIB. [Concomitant]
     Active Substance: COBIMETINIB
     Indication: METASTATIC MALIGNANT MELANOMA
     Dosage: UNK, CYCLIC
  2. HYDROXYCHLOROQUINE [Concomitant]
     Active Substance: HYDROXYCHLOROQUINE
     Indication: VASCULITIS
     Dosage: UNK, (LOW DOSE)
  3. METHOTREXATE SODIUM. [Suspect]
     Active Substance: METHOTREXATE SODIUM
     Indication: RHEUMATOID ARTHRITIS
     Dosage: UNK
     Dates: start: 2007, end: 2016
  4. VEMURAFENIB. [Concomitant]
     Active Substance: VEMURAFENIB
     Indication: METASTATIC MALIGNANT MELANOMA
     Dosage: UNK, CYCLIC
  5. PREDNISOLONE. [Concomitant]
     Active Substance: PREDNISOLONE
     Indication: VASCULITIS
     Dosage: UNK, (LOW DOSE)

REACTIONS (1)
  - Myelodysplastic syndrome [Unknown]

NARRATIVE: CASE EVENT DATE: 2016
